FAERS Safety Report 5063092-5 (Version None)
Quarter: 2006Q3

REPORT INFORMATION
  Report Type: 
  Country: None (occurrence: None)
  Receive Date: 20060724
  Receipt Date: 20060714
  Transmission Date: 20061208
  Serious: Yes (Other)
  Sender: FDA-Public Use
  Company Number: HQWYE282211MAY06

PATIENT
  Sex: Female
  Weight: 54.48 kg

DRUGS (5)
  1. EFFEXOR XR [Suspect]
     Dosage: SEE IMAGE
  2. EFFEXOR XR [Suspect]
     Dosage: SEE IMAGE
  3. EFFEXOR XR [Suspect]
     Dosage: SEE IMAGE
  4. DEPAKOTE [Concomitant]
  5. AMBIEN [Concomitant]

REACTIONS (2)
  - LOSS OF CONSCIOUSNESS [None]
  - SOMNOLENCE [None]
